FAERS Safety Report 7538162-X (Version None)
Quarter: 2011Q2

REPORT INFORMATION
  Report Type: 
  Country: None (occurrence: None)
  Receive Date: 20110609
  Receipt Date: 20011204
  Transmission Date: 20111010
  Serious: Yes (Hospitalization, Other)
  Sender: FDA-Public Use
  Company Number: PHBS2001CA08022

PATIENT
  Sex: Female

DRUGS (2)
  1. VALPROATE SODIUM [Concomitant]
     Dosage: 100 MG, QD
  2. CLOZAPINE [Suspect]
     Indication: SCHIZOAFFECTIVE DISORDER
     Dosage: 100 MG, QHS
     Dates: start: 20001201

REACTIONS (2)
  - RESPIRATORY TRACT CONGESTION [None]
  - PNEUMONIA [None]
